FAERS Safety Report 18453963 (Version 4)
Quarter: 2020Q4

REPORT INFORMATION
  Report Type: Report from Study
  Country: CA (occurrence: CA)
  Receive Date: 20201102
  Receipt Date: 20201209
  Transmission Date: 20210114
  Serious: Yes (Other)
  Sender: FDA-Public Use
  Company Number: CA-TAKEDA-CA202019071

PATIENT
  Age: 21 Year
  Sex: Male
  Weight: 51 kg

DRUGS (6)
  1. IDURSULFASE [Suspect]
     Active Substance: IDURSULFASE
     Dosage: 24 MILLIGRAM, 1X/WEEK
     Route: 065
     Dates: start: 20080403
  2. IDURSULFASE [Suspect]
     Active Substance: IDURSULFASE
     Dosage: 8 MILLIGRAM OR 3 ML VIALS, 1X/WEEK
     Route: 065
     Dates: start: 20080403
  3. IDURSULFASE [Suspect]
     Active Substance: IDURSULFASE
     Dosage: 24 MILLIGRAM, 1X/WEEK
     Route: 065
     Dates: start: 20080403
  4. IDURSULFASE [Suspect]
     Active Substance: IDURSULFASE
     Indication: MUCOPOLYSACCHARIDOSIS II
     Dosage: 24 MILLIGRAM, 1X/WEEK
     Route: 065
     Dates: start: 20080403
  5. IDURSULFASE [Suspect]
     Active Substance: IDURSULFASE
     Dosage: 24 MILLIGRAM, 1X/WEEK
     Route: 065
     Dates: start: 20200612
  6. IDURSULFASE [Suspect]
     Active Substance: IDURSULFASE
     Dosage: 8 MILLIGRAM OR 3 ML VIALS, 1X/WEEK
     Route: 065
     Dates: start: 20080403

REACTIONS (18)
  - Seizure [Unknown]
  - Temperature difference of extremities [Unknown]
  - Injection site bruising [Recovered/Resolved]
  - Syncope [Unknown]
  - Muscle mass [Unknown]
  - Bowel movement irregularity [Unknown]
  - Infusion site oedema [Recovering/Resolving]
  - Device power source issue [Recovering/Resolving]
  - Sleep deficit [Unknown]
  - Gait disturbance [Unknown]
  - Poor venous access [Recovered/Resolved]
  - Incorrect product administration duration [Recovering/Resolving]
  - Condition aggravated [Unknown]
  - Infusion related reaction [Unknown]
  - Contusion [Unknown]
  - Inappropriate schedule of product administration [Recovered/Resolved]
  - Body temperature decreased [Unknown]
  - Catheter site swelling [Recovering/Resolving]

NARRATIVE: CASE EVENT DATE: 2020
